FAERS Safety Report 5100140-8 (Version None)
Quarter: 2006Q3

REPORT INFORMATION
  Report Type: 
  Country: None (occurrence: None)
  Receive Date: 20060731
  Receipt Date: 20050629
  Transmission Date: 20061208
  Serious: Yes (Other)
  Sender: FDA-Public Use
  Company Number: US-JNJFOC-20040804347

PATIENT
  Age: 45 Year
  Sex: Female
  Weight: 90.7194 kg

DRUGS (6)
  1. RISPERDAL [Suspect]
     Indication: SCHIZOPHRENIA
     Dosage: 2 IN 1 DAY ,ORAL
     Route: 048
     Dates: start: 20030101
  2. GEODON (ZIPRASIDONE HYDRPCHLORIDE) [Concomitant]
  3. LUVOX [Concomitant]
  4. LABETALOL (LABETALAL) [Concomitant]
  5. SEQUEL (QUETIAPINE FUMARATE) [Concomitant]
  6. ZELIREET  (ALL OTHER THERAPEUTIC PRODUCTS) [Concomitant]

REACTIONS (1)
  - WEIGHT INCREASED [None]
